FAERS Safety Report 4963108-8 (Version None)
Quarter: 2006Q2

REPORT INFORMATION
  Report Type: 
  Country: None (occurrence: None)
  Receive Date: 20060405
  Receipt Date: 20060331
  Transmission Date: 20061013
  Serious: Yes (Other)
  Sender: FDA-Public Use
  Company Number: FR-GLAXOSMITHKLINE-B0418799A

PATIENT
  Age: 70 Year
  Sex: Female

DRUGS (11)
  1. AVANDIA [Suspect]
     Dosage: 8MG PER DAY
     Route: 048
  2. DIAMICRON [Suspect]
     Dosage: 4TABS PER DAY
     Route: 065
  3. RYTHMOL [Suspect]
     Dosage: 600MG PER DAY
     Route: 065
  4. DIGOXIN [Suspect]
     Route: 065
  5. NOCTAMIDE [Concomitant]
     Route: 065
  6. THERALENE [Concomitant]
     Route: 065
  7. MOPRAL [Concomitant]
     Route: 065
  8. TRANSIPEG [Concomitant]
     Route: 065
  9. POLYKARAYA [Concomitant]
     Route: 065
  10. SANMIGRAN [Concomitant]
     Route: 065
  11. SINTROM [Concomitant]
     Route: 065

REACTIONS (2)
  - DYSPNOEA EXERTIONAL [None]
  - FACE OEDEMA [None]
